FAERS Safety Report 16496038 (Version 1)
Quarter: 2019Q2

REPORT INFORMATION
  Report Type: Spontaneous
  Country: US (occurrence: US)
  Receive Date: 20190628
  Receipt Date: 20190628
  Transmission Date: 20190711
  Serious: Yes (Death, Hospitalization)
  Sender: FDA-Public Use
  Company Number: US-PFIZER INC-2016505976

PATIENT
  Age: 87 Year
  Sex: Female
  Weight: 72.56 kg

DRUGS (26)
  1. LOSARTAN POTASSIUM. [Concomitant]
     Active Substance: LOSARTAN POTASSIUM
     Dosage: 25 MG, DAILY
     Route: 048
  2. OXYCODONE HYDROCHLORIDE. [Concomitant]
     Active Substance: OXYCODONE HYDROCHLORIDE
     Indication: PAIN
     Dosage: 10 MG, AS NEEDED,(1 TABLET PO (TID)THREE TIMES A DAY PRN PAIN)
     Route: 048
  3. FLONASE [Concomitant]
     Active Substance: FLUTICASONE PROPIONATE
     Dosage: 50 UG, 2X/DAY,(1 SPRAY IN EACH NOSTRILL TWICE DAILY)
     Route: 045
  4. CALCIUM [Concomitant]
     Active Substance: CALCIUM
     Dosage: 600 MG, 2X/DAY
     Route: 048
  5. CITRUCEL [Concomitant]
     Active Substance: METHYLCELLULOSE (4000 MPA.S)
     Dosage: UNK, DAILY, (POWD )
  6. PROCTOSOL HC [Concomitant]
     Dosage: 2.5 %, AS NEEDED, (APPLY TO EFFECTED AREA THREE TIMES A DAY )
  7. OMEPRAZOLE. [Concomitant]
     Active Substance: OMEPRAZOLE
     Dosage: 20 MG, 2X/DAY, (30 MINUTES PRIOR TO EATING)
     Route: 048
  8. LYRICA [Suspect]
     Active Substance: PREGABALIN
     Indication: TREMOR
     Dosage: 150 MG, 2X/DAY
     Route: 048
  9. ARICEPT [Concomitant]
     Active Substance: DONEPEZIL HYDROCHLORIDE
     Dosage: 10 MG, 2X/DAY
     Route: 048
  10. TRIHEXYPHENIDYL HCL [Concomitant]
     Active Substance: TRIHEXYPHENIDYL HYDROCHLORIDE
     Dosage: 3 MG, 2X/DAY, (TAKE 1 1/2 )
     Route: 048
  11. VOLTAREN [Concomitant]
     Active Substance: DICLOFENAC SODIUM
     Dosage: 2 G, 4X/DAY, (APPLY 2 GMS TO AFFECTED AREA)
  12. NEURONTIN [Concomitant]
     Active Substance: GABAPENTIN
     Dosage: 300 MG, 3X/DAY
     Route: 048
  13. OXYBUTYNIN CHLORIDE. [Concomitant]
     Active Substance: OXYBUTYNIN CHLORIDE
     Dosage: 10 MG, DAILY
     Route: 048
  14. MACROBID [Concomitant]
     Active Substance: NITROFURANTOIN\NITROFURANTOIN MONOHYDRATE
     Dosage: 100 MG, DAILY
     Route: 048
  15. TOPROL XL [Concomitant]
     Active Substance: METOPROLOL SUCCINATE
     Dosage: 100 MG, DAILY,(TAKE A 2ND  TABLET IF NEEDED)
     Route: 048
  16. SODIUM CHLORIDE. [Concomitant]
     Active Substance: SODIUM CHLORIDE
     Dosage: 250 ML, UNK, (PRE-HYDRATION FOR RECLAST IV)
     Route: 042
  17. ALIGN [Concomitant]
     Active Substance: BIFIDOBACTERIUM LONGUM SUBSP. INFANTIS
     Dosage: UNK, 2X/DAY
     Route: 048
  18. NITROSTAT [Concomitant]
     Active Substance: NITROGLYCERIN
     Indication: CHEST PAIN
     Dosage: 0.4 MG, UNK,(MAX 3 TABS IN 15MLN)
     Route: 048
  19. HIPREX [Concomitant]
     Active Substance: METHENAMINE HIPPURATE
     Dosage: 1 G, 2X/DAY
     Route: 048
  20. LOPID [Concomitant]
     Active Substance: GEMFIBROZIL
     Dosage: 600 MG, 2X/DAY
     Route: 048
  21. RECLAST [Concomitant]
     Active Substance: ZOLEDRONIC ACID
     Dosage: 1 DF, UNK (100 ML X 1 DOSE INFUSION/ ONCE A YEAR)
     Route: 042
  22. LIDODERM [Concomitant]
     Active Substance: LIDOCAINE
     Dosage: UNK, CYCLIC, (APPLY 1-3 PATCHES TO AFFECTED AREA FOR 12HRS ON AND 12HRS OFF)
     Route: 062
  23. ASPIRIN. [Concomitant]
     Active Substance: ASPIRIN
     Dosage: 81 MG, DAILY
     Route: 048
  24. VESICARE [Concomitant]
     Active Substance: SOLIFENACIN SUCCINATE
     Dosage: 5 MG, DAILY
     Route: 048
  25. SYNTHROID [Concomitant]
     Active Substance: LEVOTHYROXINE SODIUM
     Dosage: 125 UG, DAILY
     Route: 048
  26. RANITIDINE HCL [Concomitant]
     Active Substance: RANITIDINE HYDROCHLORIDE
     Dosage: 150 MG, 1X/DAY,(TAKE 1 TABLET) BY MOUTH DAILY AT BEDTIME)
     Route: 048

REACTIONS (7)
  - Coronary artery disease [Fatal]
  - Upper respiratory tract infection [Unknown]
  - Off label use [Unknown]
  - Cardiac failure congestive [Fatal]
  - Nasopharyngitis [Unknown]
  - Cough [Unknown]
  - Product use in unapproved indication [Unknown]

NARRATIVE: CASE EVENT DATE: 20190517
